FAERS Safety Report 4730511-0 (Version None)
Quarter: 2005Q3

REPORT INFORMATION
  Report Type: 
  Country: None (occurrence: None)
  Receive Date: 20050725
  Receipt Date: 20050214
  Transmission Date: 20060218
  Serious: No
  Sender: FDA-Public Use
  Company Number: USA050290644

PATIENT
  Age: 11 Year
  Sex: Male
  Weight: 27 kg

DRUGS (2)
  1. STRATTERA [Suspect]
     Dosage: 68 MG DAY
     Dates: start: 20030101
  2. CLONIDINE [Concomitant]

REACTIONS (2)
  - ACCIDENTAL OVERDOSE [None]
  - PRESCRIBED OVERDOSE [None]
